FAERS Safety Report 13588483 (Version 2)
Quarter: 2017Q2

REPORT INFORMATION
  Report Type: Spontaneous
  Country: US (occurrence: US)
  Receive Date: 20170529
  Receipt Date: 20170529
  Transmission Date: 20170830
  Serious: No
  Sender: FDA-Public Use
  Company Number: US-BAUSCH-BL-2017-007984

PATIENT
  Age: 88 Year
  Sex: Female

DRUGS (10)
  1. VALSARTAN. [Concomitant]
     Active Substance: VALSARTAN
     Indication: HYPERTENSION
     Route: 048
     Dates: start: 201703
  2. TOPROL XL [Concomitant]
     Active Substance: METOPROLOL SUCCINATE
     Indication: HYPERTENSION
     Route: 048
  3. AMLODIPINE [Concomitant]
     Active Substance: AMLODIPINE BESYLATE
     Indication: HYPERTENSION
     Route: 048
  4. LASIX [Concomitant]
     Active Substance: FUROSEMIDE
     Indication: HYPERTENSION
     Route: 048
  5. OMEPRAZOLE. [Concomitant]
     Active Substance: OMEPRAZOLE
     Indication: GASTROINTESTINAL DISORDER
     Route: 048
  6. MULTIPLE VITAMIN [Concomitant]
     Active Substance: VITAMINS
     Indication: VITAMIN SUPPLEMENTATION
     Route: 048
  7. ADVANCED EYE RELIEF/DRY EYE/ ENVIRONMENTAL LUBRICANT [Suspect]
     Active Substance: GLYCERIN
     Indication: CATARACT OPERATION
     Dosage: DAILY FOR 10 DAYS RIGHT EYE
     Route: 047
     Dates: start: 20170312, end: 20170321
  8. PROBIOTICS [Concomitant]
     Active Substance: PROBIOTICS NOS
     Indication: PROBIOTIC THERAPY
     Route: 048
  9. PROLENSA [Suspect]
     Active Substance: BROMFENAC SODIUM
     Indication: CATARACT OPERATION
     Dosage: NEVER USED ON RIGHT EYE
     Route: 065
  10. SLOW MAG [Concomitant]
     Active Substance: MAGNESIUM CHLORIDE
     Indication: SUPPLEMENTATION THERAPY
     Route: 048

REACTIONS (3)
  - Expired product administered [Unknown]
  - Vision blurred [Recovering/Resolving]
  - Wrong drug administered [Unknown]

NARRATIVE: CASE EVENT DATE: 2017
